FAERS Safety Report 13485443 (Version 8)
Quarter: 2017Q3

REPORT INFORMATION
  Report Type: Report from Study
  Country: US (occurrence: US)
  Receive Date: 20170426
  Receipt Date: 20170816
  Transmission Date: 20171127
  Serious: Yes (Hospitalization, Other)
  Sender: FDA-Public Use
  Company Number: US-PFIZER INC-2017074934

PATIENT
  Age: 62 Year
  Sex: Female
  Weight: 65.3 kg

DRUGS (24)
  1. IBRANCE [Suspect]
     Active Substance: PALBOCICLIB
     Indication: BREAST CANCER METASTATIC
     Dosage: 125 MG, CYCLIC, (125 MG CAPSULE, DAILY D1-21, REST 7 DAYS/ DAILY; 3 WEEKS ON, 1 WEEK OFF)
     Route: 048
     Dates: start: 20170124
  2. VITAMIN C [Concomitant]
     Active Substance: ASCORBIC ACID
     Dosage: 500 MG, DAILY
     Route: 048
  3. LUTEIN [Concomitant]
     Active Substance: LUTEIN
     Dosage: 20 MG, DAILY (1 CAPSULE)
     Route: 048
  4. GLUCOSAMINE CHONDROITIN COMPLEX [Concomitant]
     Active Substance: CHONDROITIN SULFATE (BOVINE)\GLUCOSAMINE HYDROCHLORIDE
     Indication: BREAST CANCER METASTATIC
  5. MOTRIN [Concomitant]
     Active Substance: IBUPROFEN
     Indication: PAIN
     Dosage: 400 MG, AS NEEDED (TAKE 1 TABLET BY MOUTH EVERY 8 (EIGHT) HOURS )
     Route: 048
  6. IBRANCE [Suspect]
     Active Substance: PALBOCICLIB
     Dosage: 125 MG, CYCLIC(DAILY; 3 WEEKS ON/1 WEEK OFF)
     Route: 048
     Dates: start: 20170214
  7. FULVESTRANT. [Concomitant]
     Active Substance: FULVESTRANT
     Indication: BREAST CANCER
     Dosage: 500 MG, DAILY
     Dates: start: 20170124
  8. ADVIL [Concomitant]
     Active Substance: IBUPROFEN
     Indication: PAIN
     Dosage: 400 MG, AS NEEDED (EVERY 8 (EIGHT) HOURS )
     Route: 048
  9. NEURONTIN [Concomitant]
     Active Substance: GABAPENTIN
     Indication: POLYNEUROPATHY
     Dosage: 100 MG, 3X/DAY (1 CAPSULE BY MOUTH)
     Route: 048
  10. NORCO [Concomitant]
     Active Substance: ACETAMINOPHEN\HYDROCODONE BITARTRATE
     Dosage: UNK (HYDROCODONE 5 MG-ACETAMINOPHEN 325 MG)
  11. VITAMIN D [Concomitant]
     Active Substance: CHOLECALCIFEROL
     Dosage: 1000 IU, DAILY
     Route: 048
  12. CRANBERRY. [Concomitant]
     Active Substance: CRANBERRY
     Dosage: 250 MG, DAILY
     Route: 048
  13. FLAXSEED [Concomitant]
     Active Substance: FLAX SEED
     Dosage: 1000 MG, 2X/DAY (TAKE BY MOUTH 2 (TWO) TIMES DAILY
     Route: 048
  14. B COMPLEX WITH C [Concomitant]
     Dosage: UNK UNK, DAILY
     Route: 048
  15. RESTORIL [Concomitant]
     Active Substance: TEMAZEPAM
     Indication: SLEEP DISORDER
     Dosage: 1 DF, AS NEEDED (1 CAPSULE BY MOUTH NIGHTLY AS NEEDED)
     Route: 048
  16. ULTRAM [Concomitant]
     Active Substance: TRAMADOL HYDROCHLORIDE
     Indication: PAIN
     Dosage: 50 MG, AS NEEDED (1 TABLET BY MOUTH EVERY 6 (SIX) HOURS )
     Route: 048
  17. ZOFRAN [Concomitant]
     Active Substance: ONDANSETRON HYDROCHLORIDE
     Dosage: 8 MG, UNK
  18. DIPHENHYDRAMINE HYDROCHLORIDE W/LIDOCAINE/NYS [Concomitant]
     Dosage: UNK (SHAKE WELL)
  19. ZOFRAN [Concomitant]
     Active Substance: ONDANSETRON HYDROCHLORIDE
     Indication: NAUSEA
     Dosage: 4 MG, AS NEEDED (1 TABLET BY MOUTH EVERY 6 (SIX) HOURS )
     Route: 048
  20. FLORASTOR [Concomitant]
     Active Substance: SACCHAROMYCES CEREVISIAE
     Dosage: 250 MG, DAILY
     Route: 048
  21. GLUCOSAMINE CHONDROITIN COMPLEX [Concomitant]
     Active Substance: CHONDROITIN SULFATE (BOVINE)\GLUCOSAMINE HYDROCHLORIDE
     Indication: ABDOMINAL PAIN UPPER
  22. TYLENOL [Concomitant]
     Active Substance: ACETAMINOPHEN
     Indication: PAIN
     Dosage: AS NEEDED (TAKE 1-2 TABLETS BY MOUTH EVERY 4 (FOUR) HOURS)
     Route: 048
  23. CALCIUM CITRATE-VITAMIN D [Concomitant]
     Active Substance: CALCIUM CITRATE\VITAMIN D
     Dosage: 1 DF, 3X/DAY (CALCIUM CITRATE250 MG: COLECALCIFEROL 50MG)
     Route: 048
  24. GLUCOSAMINE CHONDROITIN COMPLEX [Concomitant]
     Active Substance: CHONDROITIN SULFATE (BOVINE)\GLUCOSAMINE HYDROCHLORIDE
     Indication: BONE CANCER
     Dosage: 1000 MG, DAILY
     Route: 048

REACTIONS (13)
  - Fatigue [Recovering/Resolving]
  - Cough [Recovering/Resolving]
  - Red blood cell count decreased [Not Recovered/Not Resolved]
  - Anaemia [Recovering/Resolving]
  - White blood cell count decreased [Unknown]
  - Muscle spasms [Recovering/Resolving]
  - Dysgeusia [Unknown]
  - Bone marrow failure [Recovered/Resolved]
  - Ear disorder [Recovering/Resolving]
  - Dry skin [Unknown]
  - Dyspnoea [Recovering/Resolving]
  - Cholelithiasis [Recovered/Resolved]
  - Nasopharyngitis [Unknown]

NARRATIVE: CASE EVENT DATE: 2017
